FAERS Safety Report 7176859-4 (Version None)
Quarter: 2010Q4

REPORT INFORMATION
  Report Type: 
  Country: None (occurrence: None)
  Receive Date: 20101220
  Receipt Date: 20101213
  Transmission Date: 20110411
  Serious: Yes (Other)
  Sender: FDA-Public Use
  Company Number: DE-JNJFOC-20101204143

PATIENT
  Sex: Male

DRUGS (4)
  1. TOPIRAMATE [Suspect]
     Indication: ILL-DEFINED DISORDER
     Route: 048
  2. LAMOTRIGINE [Suspect]
     Indication: ILL-DEFINED DISORDER
     Route: 048
  3. ASPIRIN [Suspect]
     Indication: ILL-DEFINED DISORDER
     Route: 048
  4. TORASEMID [Suspect]
     Indication: ILL-DEFINED DISORDER
     Route: 048

REACTIONS (2)
  - CONVULSION [None]
  - DRUG DOSE OMISSION [None]
